FAERS Safety Report 8556382-2 (Version None)
Quarter: 2012Q2

REPORT INFORMATION
  Report Type: 
  Country: None (occurrence: None)
  Receive Date: 20120418
  Receipt Date: 20090813
  Transmission Date: 20120825
  Serious: Yes (Other)
  Sender: FDA-Public Use
  Company Number: PHEH2009US08989

PATIENT
  Age: 58 Year
  Sex: Female
  Weight: 113.9 kg

DRUGS (1)
  1. ELIDEL [Suspect]
     Dosage: TOPICAL
     Route: 061
     Dates: start: 20090601

REACTIONS (6)
  - PRURITUS [None]
  - DRUG INEFFECTIVE [None]
  - APPLICATION SITE EROSION [None]
  - RASH [None]
  - APPLICATION SITE PAIN [None]
  - APPLICATION SITE EXFOLIATION [None]
